FAERS Safety Report 8949575 (Version 1)
Quarter: 2012Q4

REPORT INFORMATION
  Report Type: 
  Country: US (occurrence: US)
  Receive Date: 20121206
  Receipt Date: 20121206
  Transmission Date: 20130627
  Serious: No
  Sender: FDA-Public Use
  Company Number: US-BAYER-2012-127588

PATIENT
  Age: 81 Year
  Sex: Female
  Weight: 98 kg

DRUGS (6)
  1. ALEVE CAPLET/TABLET,MIDOL EXTENDED RELIEF CAPLET [Suspect]
     Dosage: 1 DF, BID
     Route: 048
     Dates: start: 201211, end: 20121128
  2. BAYER ASPIRIN REGIMEN ADULT LOW STRENGTH [Concomitant]
     Indication: MYOCARDIAL INFARCT PROPHYLAXIS
     Dosage: 1 DF, QD
     Route: 048
  3. GLUCOVANCE [Concomitant]
  4. AVALIDE [Concomitant]
  5. SYNTHROID [Concomitant]
  6. TRADJENTA [Concomitant]

REACTIONS (1)
  - Constipation [Not Recovered/Not Resolved]
